FAERS Safety Report 7739924-6 (Version None)
Quarter: 2011Q3

REPORT INFORMATION
  Report Type: 
  Country: None (occurrence: None)
  Receive Date: 20110909
  Receipt Date: 20110903
  Transmission Date: 20111222
  Serious: Yes (Other)
  Sender: FDA-Public Use
  Company Number: PHHY2011US79007

PATIENT
  Age: 57 Year
  Sex: Female

DRUGS (2)
  1. IBANDRONATE SODIUM [Concomitant]
  2. ZOLEDRONIC [Suspect]
     Indication: OSTEOPOROSIS

REACTIONS (7)
  - PAROPHTHALMIA [None]
  - INTRAOCULAR PRESSURE INCREASED [None]
  - PHOTOPHOBIA [None]
  - EYELID OEDEMA [None]
  - EYE SWELLING [None]
  - EXTRAOCULAR MUSCLE DISORDER [None]
  - EYE PAIN [None]
